FAERS Safety Report 11829588 (Version 2)
Quarter: 2015Q4

REPORT INFORMATION
  Report Type: Spontaneous
  Country: FR (occurrence: FR)
  Receive Date: 20151212
  Receipt Date: 20151215
  Transmission Date: 20160305
  Serious: Yes (Life-Threatening, Hospitalization)
  Sender: FDA-Public Use
  Company Number: FR-ASTRAZENECA-2015SF22630

PATIENT
  Age: 25698 Day
  Sex: Male

DRUGS (13)
  1. PLAVIX [Concomitant]
     Active Substance: CLOPIDOGREL BISULFATE
     Dates: start: 20151113
  2. LASIX [Concomitant]
     Active Substance: FUROSEMIDE
     Route: 042
  3. RAMIPRIL. [Concomitant]
     Active Substance: RAMIPRIL
  4. KARDEGIC [Concomitant]
     Active Substance: ASPIRIN LYSINE
  5. ROCEPHINE [Concomitant]
     Active Substance: CEFTRIAXONE SODIUM
  6. SEROPLEX [Concomitant]
     Active Substance: ESCITALOPRAM OXALATE
  7. LANTUS [Concomitant]
     Active Substance: INSULIN GLARGINE
  8. METFORMIN [Concomitant]
     Active Substance: METFORMIN HYDROCHLORIDE
  9. OMEPRAZOLE. [Concomitant]
     Active Substance: OMEPRAZOLE
  10. ROSUVASTATIN [Concomitant]
     Active Substance: ROSUVASTATIN
  11. AMAREL [Concomitant]
     Active Substance: GLIMEPIRIDE
  12. BYETTA [Suspect]
     Active Substance: EXENATIDE
     Indication: TYPE 2 DIABETES MELLITUS
     Route: 058
     Dates: start: 201505, end: 201511
  13. SOTALOL. [Concomitant]
     Active Substance: SOTALOL

REACTIONS (2)
  - Pancreatitis acute [Recovering/Resolving]
  - Coronary artery disease [Unknown]

NARRATIVE: CASE EVENT DATE: 20151111
